FAERS Safety Report 9668312 (Version 2)
Quarter: 2015Q2

REPORT INFORMATION
  Report Type: Spontaneous
  Country: GB (occurrence: GB)
  Receive Date: 20131104
  Receipt Date: 20150527
  Transmission Date: 20150821
  Serious: Yes (Hospitalization)
  Sender: FDA-Public Use
  Company Number: PHHY2013GB120836

PATIENT
  Sex: Male

DRUGS (2)
  1. CODEINE [Concomitant]
     Active Substance: CODEINE
  2. FLUOXETINE [Suspect]
     Active Substance: FLUOXETINE\FLUOXETINE HYDROCHLORIDE

REACTIONS (20)
  - Seizure [Recovered/Resolved]
  - Generalised tonic-clonic seizure [Recovered/Resolved]
  - Serotonin syndrome [Recovered/Resolved]
  - Musculoskeletal pain [Recovered/Resolved]
  - Joint dislocation [Recovered/Resolved]
  - Hyperreflexia [Recovered/Resolved]
  - Opisthotonus [Recovered/Resolved]
  - Confusional state [Recovered/Resolved]
  - Back pain [Recovered/Resolved]
  - Thinking abnormal [Recovered/Resolved]
  - Spinal compression fracture [Recovered/Resolved]
  - Leukocytosis [Recovered/Resolved]
  - Tongue biting [Recovered/Resolved]
  - Agitation [Recovered/Resolved]
  - Autonomic nervous system imbalance [Recovered/Resolved]
  - Somnolence [Recovered/Resolved]
  - Tachycardia [Recovered/Resolved]
  - Speech disorder [Recovered/Resolved]
  - Pyrexia [Recovered/Resolved]
  - Myoclonus [Recovered/Resolved]
